FAERS Safety Report 5214321-6 (Version None)
Quarter: 2007Q1

REPORT INFORMATION
  Report Type: 
  Country: None (occurrence: None)
  Receive Date: 20070122
  Receipt Date: 20070110
  Transmission Date: 20070707
  Serious: Yes (Disabling)
  Sender: FDA-Public Use
  Company Number: GB-MERCK-0603GBR00066

PATIENT
  Age: 71 Year
  Sex: Female
  Weight: 75 kg

DRUGS (7)
  1. ZETIA [Suspect]
     Indication: BLOOD CHOLESTEROL INCREASED
     Route: 048
     Dates: start: 20051110, end: 20060126
  2. ATORVASTATIN CALCIUM [Suspect]
     Indication: BLOOD CHOLESTEROL INCREASED
     Route: 065
     Dates: start: 20050318, end: 20060224
  3. VASERETIC [Concomitant]
     Indication: BLOOD PRESSURE INCREASED
     Route: 065
     Dates: start: 19991210
  4. NIFEDIPINE [Concomitant]
     Indication: BLOOD PRESSURE INCREASED
     Route: 065
     Dates: start: 20051209, end: 20060120
  5. DOXAZOSIN MESYLATE [Concomitant]
     Indication: BLOOD PRESSURE INCREASED
     Route: 065
     Dates: start: 20050927, end: 20060224
  6. VENLAFAXINE HYDROCHLORIDE [Concomitant]
     Indication: DEPRESSION
     Route: 065
     Dates: start: 20040616
  7. OMEPRAZOLE [Concomitant]
     Indication: GASTROOESOPHAGEAL REFLUX DISEASE
     Route: 065
     Dates: start: 19950301

REACTIONS (3)
  - BLOOD CREATINE PHOSPHOKINASE INCREASED [None]
  - DRUG INTERACTION [None]
  - MYALGIA [None]
